FAERS Safety Report 4559686-3 (Version None)
Quarter: 2005Q1

REPORT INFORMATION
  Report Type: 
  Country: None (occurrence: None)
  Receive Date: 20050114
  Receipt Date: 20040126
  Transmission Date: 20050727
  Serious: Yes (Hospitalization)
  Sender: FDA-Public Use
  Company Number: FEI2004-0024

PATIENT
  Age: 42 Year
  Sex: Female
  Weight: 56.246 kg

DRUGS (1)
  1. INTRAUTERINE COPPER CONTRACEPTIVE [Suspect]
     Indication: CONTRACEPTION
     Dosage: NA, NA; INTRA-UTERINE
     Route: 015
     Dates: start: 20031205, end: 20040123

REACTIONS (5)
  - ABDOMINAL PAIN [None]
  - INTRA-UTERINE CONTRACEPTIVE DEVICE EXPELLED [None]
  - METRORRHAGIA [None]
  - PAIN [None]
  - VAGINAL INFECTION [None]
